FAERS Safety Report 16784752 (Version 4)
Quarter: 2020Q3

REPORT INFORMATION
  Report Type: Report from Study
  Country: US (occurrence: US)
  Receive Date: 20190909
  Receipt Date: 20200720
  Transmission Date: 20201102
  Serious: No
  Sender: FDA-Public Use
  Company Number: PHEH2019US036910

PATIENT
  Age: 47 Year
  Sex: Female

DRUGS (2)
  1. COSENTYX [Suspect]
     Active Substance: SECUKINUMAB
     Indication: PSORIATIC ARTHROPATHY
     Route: 065
  2. COSENTYX [Suspect]
     Active Substance: SECUKINUMAB
     Indication: PROSTATIC SPECIFIC ANTIGEN

REACTIONS (9)
  - Injection site reaction [Unknown]
  - Oropharyngeal pain [Unknown]
  - Nasopharyngitis [Unknown]
  - Sinus congestion [Unknown]
  - Pruritus [Unknown]
  - Nasal congestion [Unknown]
  - Psoriasis [Unknown]
  - Bacterial infection [Unknown]
  - Ear pain [Unknown]

NARRATIVE: CASE EVENT DATE: 20190830
